FAERS Safety Report 5577741-6 (Version None)
Quarter: 2007Q4

REPORT INFORMATION
  Report Type: 
  Country: None (occurrence: None)
  Receive Date: 20071227
  Receipt Date: 20071218
  Transmission Date: 20080405
  Serious: Yes (Other)
  Sender: FDA-Public Use
  Company Number: 2007SP004145

PATIENT
  Age: 79 Year
  Sex: Female
  Weight: 74.8435 kg

DRUGS (3)
  1. LUNESTA [Suspect]
     Indication: INSOMNIA
     Dosage: 1 MG;ORAL;2MG;ORAL;3MG;ORAL
     Route: 048
     Dates: start: 20060101
  2. ANTIHYPERTENSIVES [Concomitant]
  3. ANTI-DIABETICS [Concomitant]

REACTIONS (4)
  - BREAST CANCER STAGE I [None]
  - DRUG EFFECT DECREASED [None]
  - IMPAIRED HEALING [None]
  - INSOMNIA [None]
